FAERS Safety Report 10498125 (Version 2)
Quarter: 2014Q4

REPORT INFORMATION
  Report Type: Spontaneous
  Country: US (occurrence: None)
  Receive Date: 20141002
  Receipt Date: 20141103
  Transmission Date: 20150528
  Serious: Yes (Death)
  Sender: FDA-Public Use
  Company Number: 2014-US-012277

PATIENT
  Sex: Female

DRUGS (15)
  1. ALBUTEROL SULFATE HFA (SALBUTAMOL SULFATE) [Concomitant]
  2. LEXAPRO [Concomitant]
     Active Substance: ESCITALOPRAM OXALATE
  3. FOLIC ACID (FOLIC ACID) POWDER [Concomitant]
  4. PREDNISONE (PREDNISONE) [Concomitant]
     Active Substance: PREDNISONE
  5. HYDRALAZINE (HYDRAZALINE) [Concomitant]
  6. HUMALOG [Concomitant]
     Active Substance: INSULIN LISPRO
  7. ADVAIR DISKUS (FLUTICASONE PROPRIONATE, SALMETEROL XINAFOATE) [Concomitant]
  8. VATIMIN D (COLECALCIFEROL) [Concomitant]
  9. REQUIP [Concomitant]
     Active Substance: ROPINIROLE HYDROCHLORIDE
  10. ASPIR EC (ACETYLSALICYLIC ACID) [Concomitant]
  11. XYREM [Suspect]
     Active Substance: SODIUM OXYBATE
     Indication: NARCOLEPSY
     Route: 048
     Dates: start: 201404, end: 2014
  12. SYNTHROID [Concomitant]
     Active Substance: LEVOTHYROXINE SODIUM
  13. INSULIN GLARGINE (INSULIN GLARGINE) [Concomitant]
     Active Substance: INSULIN GLARGINE
  14. LASIX [Concomitant]
     Active Substance: FUROSEMIDE
  15. METOPROLOL TARTRATE (METOPROLOL TARTRATE) [Concomitant]

REACTIONS (1)
  - Death [None]

NARRATIVE: CASE EVENT DATE: 2014
